FAERS Safety Report 11230570 (Version 1)
Quarter: 2015Q3

REPORT INFORMATION
  Report Type: Spontaneous
  Country: US (occurrence: US)
  Receive Date: 20150701
  Receipt Date: 20150701
  Transmission Date: 20151125
  Serious: Yes (Death, Other)
  Sender: FDA-Public Use
  Company Number: US-AMGEN-USASP2015064581

PATIENT
  Age: 75 Year
  Sex: Female

DRUGS (2)
  1. NEULASTA [Suspect]
     Active Substance: PEGFILGRASTIM
     Indication: PRODUCT USED FOR UNKNOWN INDICATION
     Dosage: UNK
     Route: 065
  2. TOPOTECAN [Suspect]
     Active Substance: TOPOTECAN\TOPOTECAN HYDROCHLORIDE
     Indication: OVARIAN CANCER
     Dosage: UNK
     Route: 065

REACTIONS (3)
  - Ovarian cancer [Unknown]
  - Unevaluable event [Unknown]
  - Death [Fatal]

NARRATIVE: CASE EVENT DATE: 20150627
